FAERS Safety Report 5166809-4 (Version None)
Quarter: 2006Q4

REPORT INFORMATION
  Report Type: 
  Country: None (occurrence: None)
  Receive Date: 20061129
  Receipt Date: 20061123
  Transmission Date: 20070319
  Serious: Yes (Hospitalization)
  Sender: FDA-Public Use
  Company Number: OMPQ-GE-0611S-1554

PATIENT
  Age: 77 Year
  Sex: Female

DRUGS (2)
  1. ACCUPAQUE [Suspect]
     Indication: CORONARY ARTERY DISEASE
     Dosage: 40 ML, SINGLE DOSE
     Dates: start: 20060101, end: 20060101
  2. LASIX [Concomitant]

REACTIONS (5)
  - BLOOD ELECTROLYTES ABNORMAL [None]
  - CEREBROVASCULAR ACCIDENT [None]
  - CONFUSIONAL STATE [None]
  - DEHYDRATION [None]
  - POLYURIA [None]
